FAERS Safety Report 4278290-8 (Version None)
Quarter: 2004Q1

REPORT INFORMATION
  Report Type: 
  Country: None (occurrence: None)
  Receive Date: 20040121
  Receipt Date: 20040106
  Transmission Date: 20041129
  Serious: Yes (Disabling)
  Sender: FDA-Public Use
  Company Number: JP_031102123

PATIENT
  Age: 73 Year
  Sex: Male
  Weight: 60 kg

DRUGS (10)
  1. VANCOMYCIN HYDROCHLORIDE [Suspect]
     Indication: PNEUMONIA STAPHYLOCOCCAL
     Dosage: 500 MG/2 DAY
     Dates: start: 20030813, end: 20030820
  2. FAMOTIDINE [Concomitant]
  3. DILTIAZEM HCL [Concomitant]
  4. NORVASC [Concomitant]
  5. BISOLVON (BROMHEXINE HYDROCHLORIDE) [Concomitant]
  6. FLUMARIN (FLOMOXEF SODIUM) [Concomitant]
  7. LASIX [Concomitant]
  8. ZOLPIDEM TARTRATE [Concomitant]
  9. SEROQUEL [Concomitant]
  10. CARBENIN [Concomitant]

REACTIONS (4)
  - BLOOD CREATININE INCREASED [None]
  - BLOOD UREA INCREASED [None]
  - CONDITION AGGRAVATED [None]
  - HEPATIC FUNCTION ABNORMAL [None]
